FAERS Safety Report 7893987-6 (Version None)
Quarter: 2011Q4

REPORT INFORMATION
  Report Type: 
  Country: None (occurrence: None)
  Receive Date: 20111104
  Receipt Date: 20111026
  Transmission Date: 20120403
  Serious: Yes (Other)
  Sender: FDA-Public Use
  Company Number: US-JNJFOC-20100908031

PATIENT
  Sex: Female
  Weight: 59.42 kg

DRUGS (11)
  1. LEVOXYL [Concomitant]
     Indication: THYROID DISORDER
     Route: 048
     Dates: start: 20100101
  2. METOPROLOL TARTRATE [Concomitant]
     Indication: HYPERTENSION
     Route: 048
  3. KLONOPIN [Concomitant]
     Indication: TIC
     Route: 048
  4. FENTANYL-100 [Suspect]
     Route: 062
     Dates: start: 20101005
  5. CLONAZEPAM [Concomitant]
     Indication: TONGUE SPASM
     Dosage: 1-2 PER DAY
  6. TEMAZEPAM [Concomitant]
     Indication: SLEEP DISORDER
     Dosage: 1-2 PER DAY
     Route: 048
  7. FENTANYL-100 [Suspect]
     Indication: PAIN IN EXTREMITY
     Dosage: 1 TO 2 PATCHES EVERY 72 HOURS AS NEEDED
     Route: 062
     Dates: start: 20100917
  8. FENTANYL-100 [Suspect]
     Dosage: NDC:0781-7243-55
     Route: 062
     Dates: start: 20110801
  9. NORCO [Concomitant]
     Indication: BREAKTHROUGH PAIN
     Route: 048
  10. LEVOTHYROXINE SODIUM [Concomitant]
     Indication: THYROID DISORDER
  11. VALTREX [Concomitant]
     Indication: HERPES VIRUS INFECTION
     Route: 048

REACTIONS (17)
  - DRUG INEFFECTIVE [None]
  - PYREXIA [None]
  - MUSCLE SPASMS [None]
  - NERVE COMPRESSION [None]
  - INADEQUATE ANALGESIA [None]
  - PAIN [None]
  - DIZZINESS [None]
  - MASS [None]
  - DISLOCATION OF VERTEBRA [None]
  - ABNORMAL DREAMS [None]
  - DRUG ADMINISTERED AT INAPPROPRIATE SITE [None]
  - PRODUCT QUALITY ISSUE [None]
  - HEADACHE [None]
  - CHILLS [None]
  - OROPHARYNGEAL PAIN [None]
  - NAUSEA [None]
  - FATIGUE [None]
